FAERS Safety Report 9887711 (Version 2)
Quarter: 2014Q1

REPORT INFORMATION
  Report Type: Report from Study
  Country: JP (occurrence: JP)
  Receive Date: 20140211
  Receipt Date: 20140303
  Transmission Date: 20141002
  Serious: Yes (Death, Other)
  Sender: FDA-Public Use
  Company Number: PHHY2014JP016070

PATIENT
  Sex: 0

DRUGS (7)
  1. INDACATEROL [Suspect]
     Indication: CHRONIC OBSTRUCTIVE PULMONARY DISEASE
     Dosage: 150 UG, DAILY
     Route: 055
     Dates: start: 20121203
  2. INDACATEROL [Suspect]
     Indication: EMPHYSEMA
  3. SPIRIVA [Concomitant]
     Indication: CHRONIC OBSTRUCTIVE PULMONARY DISEASE
     Dosage: 18 UG, UNK
     Route: 055
     Dates: end: 20130604
  4. DEPAS [Concomitant]
     Indication: PALPITATIONS
     Route: 048
     Dates: end: 20130604
  5. NORVASC [Concomitant]
     Indication: HYPERTENSION
     Dosage: 2.5 MG, UNK
     Route: 048
     Dates: end: 20130604
  6. PREMINENT [Concomitant]
     Dosage: 1 DF, UNK
     Route: 048
     Dates: start: 20130604
  7. MYSLEE [Concomitant]
     Indication: INSOMNIA
     Dosage: UNK UKN, UNK
     Route: 048
     Dates: start: 20130604

REACTIONS (4)
  - Pneumonia [Fatal]
  - Dyspnoea [Fatal]
  - Malaise [Fatal]
  - Cardiac arrest [Unknown]
